FAERS Safety Report 9214401 (Version 1)
Quarter: 2013Q2

REPORT INFORMATION
  Report Type: Spontaneous
  Country: US (occurrence: None)
  Receive Date: 20130403
  Receipt Date: 20130403
  Transmission Date: 20140414
  Serious: Yes (Death)
  Sender: FDA-Public Use
  Company Number: 20120009

PATIENT
  Age: 58 Year
  Sex: Female

DRUGS (4)
  1. SUBSYS (FENTANYL SUBLINGUAL SPRAY) 200MCG, INSYS THERAPEUTICS [Suspect]
     Indication: OVARIAN CANCER
     Dosage: MCG AS NEEDED
     Dates: start: 20121211, end: 20130210
  2. DILAUDID [Concomitant]
  3. COMPAZINE [Concomitant]
  4. CYMBALTA [Concomitant]

REACTIONS (1)
  - Death [None]
